FAERS Safety Report 11298698 (Version 1)
Quarter: 2015Q3

REPORT INFORMATION
  Report Type: Spontaneous
  Country: US (occurrence: US)
  Receive Date: 20150722
  Receipt Date: 20150722
  Transmission Date: 20151125
  Serious: No
  Sender: FDA-Public Use
  Company Number: US-ELI_LILLY_AND_COMPANY-US201203001537

PATIENT
  Sex: Male

DRUGS (5)
  1. COREG [Concomitant]
     Active Substance: CARVEDILOL
     Dosage: 6.5 MG, BID
  2. SOTALOL. [Concomitant]
     Active Substance: SOTALOL
     Dosage: UNK, UNKNOWN
  3. EFFIENT [Suspect]
     Active Substance: PRASUGREL HYDROCHLORIDE
     Indication: STENT PLACEMENT
     Dosage: 10 MG, UNKNOWN
     Dates: start: 20111219
  4. COUMADIN [Concomitant]
     Active Substance: WARFARIN SODIUM
     Dosage: 5 MG, UNKNOWN
  5. LISINOPRIL. [Concomitant]
     Active Substance: LISINOPRIL
     Dosage: 20 MG, UNKNOWN

REACTIONS (3)
  - Nausea [Unknown]
  - Palpitations [Unknown]
  - Pain [Unknown]
